FAERS Safety Report 8838557 (Version 1)
Quarter: 2012Q4

REPORT INFORMATION
  Report Type: 
  Country: JP (occurrence: JP)
  Receive Date: 20121012
  Receipt Date: 20121012
  Transmission Date: 20130627
  Serious: Yes (Hospitalization, Disabling)
  Sender: FDA-Public Use
  Company Number: JP-ELI_LILLY_AND_COMPANY-JP201208006601

PATIENT
  Age: 74 Year
  Sex: Male

DRUGS (3)
  1. GEMZAR [Suspect]
     Indication: PANCREATIC CARCINOMA
     Dosage: 1700 mg, other
     Route: 042
     Dates: start: 20120720
  2. GEMZAR [Suspect]
     Dosage: UNK UNK, other
     Route: 042
  3. TS 1 [Concomitant]
     Indication: PANCREATIC CARCINOMA
     Dosage: 100 mg, other
     Route: 048
     Dates: start: 20120720, end: 20120803

REACTIONS (4)
  - Dysgeusia [Recovered/Resolved with Sequelae]
  - Decreased appetite [Recovered/Resolved with Sequelae]
  - White blood cell count decreased [Recovered/Resolved]
  - Platelet count decreased [Recovered/Resolved]
